FAERS Safety Report 25974246 (Version 1)
Quarter: 2025Q4

REPORT INFORMATION
  Report Type: Spontaneous
  Country: EU (occurrence: EU)
  Receive Date: 20251029
  Receipt Date: 20251029
  Transmission Date: 20260117
  Serious: Yes (Other)
  Sender: NOVARTIS
  Company Number: None

PATIENT
  Age: 86 Year
  Sex: Male

DRUGS (11)
  1. CARBAMAZEPINE [Suspect]
     Active Substance: CARBAMAZEPINE
     Indication: Medication error
     Dosage: 200 MG, TOTAL
     Route: 048
     Dates: start: 20250801, end: 20250801
  2. FELODIPINE\METOPROLOL SUCCINATE [Suspect]
     Active Substance: FELODIPINE\METOPROLOL SUCCINATE
     Indication: Medication error
     Dosage: 1 DOSAGE FORM, 1 TOTAL, TABLET, EXTENDED RELEASE
     Route: 048
     Dates: start: 20250801, end: 20250801
  3. URAPIDIL [Suspect]
     Active Substance: URAPIDIL
     Indication: Medication error
     Dosage: 60 MG, TOTAL
     Route: 048
     Dates: start: 20250801, end: 20250801
  4. LIPTRUZET [Suspect]
     Active Substance: ATORVASTATIN CALCIUM\EZETIMIBE
     Indication: Medication error
     Dosage: 1 DOSAGE FORM, TOTAL
     Route: 048
     Dates: start: 20250801, end: 20250801
  5. ASCORBIC ACID\FERROUS SULFATE [Suspect]
     Active Substance: ASCORBIC ACID\FERROUS SULFATE
     Indication: Medication error
     Dosage: 50 MG, TOTAL
     Route: 048
     Dates: start: 20250801, end: 20250801
  6. DILTIAZEM HYDROCHLORIDE [Concomitant]
     Active Substance: DILTIAZEM HYDROCHLORIDE
     Indication: Product used for unknown indication
     Dosage: UNK
     Route: 065
  7. LANSOPRAZOLE [Concomitant]
     Active Substance: LANSOPRAZOLE
     Indication: Product used for unknown indication
     Dosage: UNK
     Route: 065
  8. MIANSERIN HYDROCHLORIDE [Concomitant]
     Active Substance: MIANSERIN HYDROCHLORIDE
     Indication: Product used for unknown indication
     Dosage: UNK
     Route: 065
  9. PERINDOPRIL [Concomitant]
     Active Substance: PERINDOPRIL
     Indication: Product used for unknown indication
     Dosage: UNK
     Route: 065
  10. PRAZEPAM [Concomitant]
     Active Substance: PRAZEPAM
     Indication: Product used for unknown indication
     Dosage: UNK
     Route: 065
  11. HERBALS\SAW PALMETTO [Concomitant]
     Active Substance: HERBALS\SAW PALMETTO
     Indication: Product used for unknown indication
     Dosage: UNK
     Route: 065

REACTIONS (3)
  - Bradycardia [Recovered/Resolved]
  - Hypotension [Recovered/Resolved]
  - Wrong patient received product [Recovered/Resolved]

NARRATIVE: CASE EVENT DATE: 20250801
